FAERS Safety Report 16890219 (Version 2)
Quarter: 2019Q4

REPORT INFORMATION
  Report Type: Spontaneous
  Country: US (occurrence: US)
  Receive Date: 20191007
  Receipt Date: 20191022
  Transmission Date: 20200122
  Serious: No
  Sender: FDA-Public Use
  Company Number: US-AMGEN-USASP2019160070

PATIENT
  Age: 65 Year
  Sex: Female
  Weight: 81.22 kg

DRUGS (1)
  1. REPATHA [Suspect]
     Active Substance: EVOLOCUMAB
     Indication: TYPE IIA HYPERLIPIDAEMIA
     Dosage: 140 MILLIGRAM, Q2WK
     Route: 058
     Dates: start: 2016, end: 20190923

REACTIONS (3)
  - Pain [Unknown]
  - Myalgia [Unknown]
  - Muscular weakness [Unknown]
